FAERS Safety Report 13114396 (Version 1)
Quarter: 2017Q1

REPORT INFORMATION
  Report Type: Spontaneous
  Country: FR (occurrence: FR)
  Receive Date: 20170113
  Receipt Date: 20170113
  Transmission Date: 20170428
  Serious: Yes (Other)
  Sender: FDA-Public Use
  Company Number: FR-MYLANLABS-2017M1001315

PATIENT

DRUGS (4)
  1. FLUOROURACILE ACCORD [Suspect]
     Active Substance: FLUOROURACIL
     Indication: BREAST CANCER
     Dosage: 820 MG, Q3W
     Route: 042
     Dates: start: 20141210, end: 20150122
  2. EPIRUBICINA MYLAN [Suspect]
     Active Substance: ACLARUBICIN
     Indication: BREAST CANCER
     Dosage: 164 MG, Q3W
     Route: 042
     Dates: start: 20141210, end: 20150122
  3. ENDOXAN                            /00021101/ [Suspect]
     Active Substance: CYCLOPHOSPHAMIDE
     Indication: BREAST CANCER
     Dosage: 820 MG, Q3W
     Dates: start: 20141210, end: 20150122
  4. PACLITAXEL. [Suspect]
     Active Substance: PACLITAXEL
     Indication: BREAST CANCER
     Dosage: 131 MG, QW
     Dates: start: 20150220, end: 20150410

REACTIONS (5)
  - Memory impairment [Not Recovered/Not Resolved]
  - Diplopia [Not Recovered/Not Resolved]
  - Aphasia [None]
  - Axonal neuropathy [Not Recovered/Not Resolved]
  - External ear pain [Not Recovered/Not Resolved]

NARRATIVE: CASE EVENT DATE: 20150102
